FAERS Safety Report 4640514-2 (Version None)
Quarter: 2005Q2

REPORT INFORMATION
  Report Type: 
  Country: None (occurrence: None)
  Receive Date: 20050419
  Receipt Date: 20050406
  Transmission Date: 20051028
  Serious: Yes (Other)
  Sender: FDA-Public Use
  Company Number: 2005047268

PATIENT
  Age: 69 Year
  Sex: Male
  Weight: 83.9154 kg

DRUGS (7)
  1. DIFLUCAN [Suspect]
     Indication: COCCIDIOIDOMYCOSIS
     Dosage: SEE IMAGE
  2. WARFARIN SODIUM [Suspect]
     Indication: ILL-DEFINED DISORDER
     Dosage: ORAL
     Route: 048
  3. ASPIRIN [Suspect]
     Indication: ILL-DEFINED DISORDER
     Dosage: ORAL
  4. PERCOCET [Concomitant]
  5. DIAZEPAM [Concomitant]
  6. DIGOXIN [Concomitant]
  7. VITAMINS (VITAMINS) [Concomitant]

REACTIONS (11)
  - ADVERSE DRUG REACTION [None]
  - APHONIA [None]
  - BLADDER CANCER [None]
  - COCCIDIOIDOMYCOSIS [None]
  - DYSPNOEA [None]
  - HAEMOPTYSIS [None]
  - INTERNATIONAL NORMALISED RATIO INCREASED [None]
  - MENINGITIS COCCIDIOIDES [None]
  - NASAL CONGESTION [None]
  - TRANSITIONAL CELL CARCINOMA [None]
  - TREATMENT NONCOMPLIANCE [None]
